FAERS Safety Report 19144125 (Version 2)
Quarter: 2021Q2

REPORT INFORMATION
  Report Type: Report from Study
  Country: CA (occurrence: CA)
  Receive Date: 20210416
  Receipt Date: 20210429
  Transmission Date: 20210717
  Serious: Yes (Hospitalization, Other)
  Sender: FDA-Public Use
  Company Number: CA-BEH-2021129682

PATIENT
  Age: 71 Year
  Sex: Male
  Weight: 63.5 kg

DRUGS (2)
  1. HIZENTRA [Suspect]
     Active Substance: HUMAN IMMUNOGLOBULIN G
     Indication: CHRONIC INFLAMMATORY DEMYELINATING POLYRADICULONEUROPATHY
     Dosage: 12 GRAM, QW
     Route: 065
     Dates: start: 20201216
  2. HIZENTRA [Suspect]
     Active Substance: HUMAN IMMUNOGLOBULIN G
     Indication: SECONDARY IMMUNODEFICIENCY

REACTIONS (5)
  - Malaise [Unknown]
  - Therapy interrupted [Unknown]
  - Bacteraemia [Unknown]
  - Weight decreased [Unknown]
  - COVID-19 [Unknown]
